FAERS Safety Report 4418187-3 (Version None)
Quarter: 2004Q3

REPORT INFORMATION
  Report Type: 
  Country: None (occurrence: None)
  Receive Date: 20040809
  Receipt Date: 20031223
  Transmission Date: 20050211
  Serious: No
  Sender: FDA-Public Use
  Company Number: US-GLAXOSMITHKLINE-A0444107A

PATIENT
  Age: 23 Year
  Sex: Female

DRUGS (2)
  1. PAXIL CR [Suspect]
     Dosage: 75MG PER DAY
     Route: 048
  2. MULTI-VITAMINS [Concomitant]

REACTIONS (2)
  - AGITATION [None]
  - INSOMNIA [None]
